FAERS Safety Report 24155590 (Version 3)
Quarter: 2024Q3

REPORT INFORMATION
  Report Type: Report from Study
  Country: CA (occurrence: CA)
  Receive Date: 20240731
  Receipt Date: 20240912
  Transmission Date: 20241016
  Serious: Yes (Other)
  Sender: JOHNSON AND JOHNSON
  Company Number: CA-JNJFOC-20240521148

PATIENT
  Age: 36 Year
  Sex: Male
  Weight: 70.31 kg

DRUGS (2)
  1. REMICADE [Suspect]
     Active Substance: INFLIXIMAB
     Indication: Colitis ulcerative
     Route: 041
     Dates: start: 20240513
  2. REMICADE [Suspect]
     Active Substance: INFLIXIMAB
     Route: 041

REACTIONS (7)
  - Colitis ulcerative [Not Recovered/Not Resolved]
  - Chest pain [Recovering/Resolving]
  - Paraesthesia oral [Unknown]
  - Headache [Unknown]
  - Infusion related reaction [Unknown]
  - Drug level decreased [Unknown]
  - Off label use [Unknown]

NARRATIVE: CASE EVENT DATE: 20240101
